FAERS Safety Report 9541029 (Version 1)
Quarter: 2013Q3

REPORT INFORMATION
  Report Type: Spontaneous
  Country: TR (occurrence: TR)
  Receive Date: 20130922
  Receipt Date: 20130922
  Transmission Date: 20140515
  Serious: Yes (Hospitalization)
  Sender: FDA-Public Use
  Company Number: TR-MYLANLABS-2013S1020505

PATIENT
  Age: 15 Year
  Sex: Male

DRUGS (1)
  1. LAMOTRIGINE [Suspect]
     Indication: TONIC CONVULSION
     Dosage: 4MG/KG/DAY
     Route: 065

REACTIONS (1)
  - Allergic myocarditis [Recovering/Resolving]
